FAERS Safety Report 8665062 (Version 2)
Quarter: 2013Q4

REPORT INFORMATION
  Report Type: Spontaneous
  Country: US (occurrence: US)
  Receive Date: 20120716
  Receipt Date: 20131101
  Transmission Date: 20140711
  Serious: No
  Sender: FDA-Public Use
  Company Number: US-009507513-1207USA002207

PATIENT
  Age: 83 Year
  Sex: Female

DRUGS (5)
  1. COZAAR [Suspect]
     Indication: BLOOD PRESSURE FLUCTUATION
     Dosage: 25 MG, UNK
     Route: 048
     Dates: start: 20120705
  2. COZAAR [Suspect]
     Indication: ARRHYTHMIA
  3. GLIPIZIDE [Concomitant]
  4. SYNTHROID [Concomitant]
  5. VITAMINS (UNSPECIFIED) [Concomitant]

REACTIONS (2)
  - Cough [Not Recovered/Not Resolved]
  - Wrong technique in drug usage process [Unknown]
